FAERS Safety Report 9336819 (Version 2)
Quarter: 2013Q3

REPORT INFORMATION
  Report Type: Spontaneous
  Country: US (occurrence: US)
  Receive Date: 20130607
  Receipt Date: 20130710
  Transmission Date: 20140515
  Serious: Yes (Other)
  Sender: FDA-Public Use
  Company Number: US-ASTELLAS-2013US005873

PATIENT
  Sex: Female

DRUGS (2)
  1. VESICARE [Suspect]
     Indication: BLADDER SPASM
     Dosage: 5 MG, UID/QD
     Route: 048
     Dates: start: 20130517, end: 20130523
  2. CETIRIZINE [Concomitant]
     Indication: PRODUCT USED FOR UNKNOWN INDICATION
     Dosage: 1 DF, UID/QD
     Route: 065

REACTIONS (3)
  - Off label use [Unknown]
  - Paralysis [Recovered/Resolved]
  - Arthralgia [Recovered/Resolved]
